FAERS Safety Report 5117586-4 (Version None)
Quarter: 2006Q3

REPORT INFORMATION
  Report Type: 
  Country: None (occurrence: None)
  Receive Date: 20060929
  Receipt Date: 20060919
  Transmission Date: 20061208
  Serious: Yes (Hospitalization)
  Sender: FDA-Public Use
  Company Number: CA-JNJFOC-20060805263

PATIENT
  Sex: Female
  Weight: 68 kg

DRUGS (14)
  1. REMICADE [Suspect]
     Route: 042
  2. REMICADE [Suspect]
     Indication: RECTAL HAEMORRHAGE
     Route: 042
  3. REMICADE [Suspect]
     Indication: COLITIS ULCERATIVE
     Route: 042
  4. PURINETHOL [Concomitant]
  5. SALOFALK [Concomitant]
  6. RYTHMOL [Concomitant]
  7. URO-D [Concomitant]
  8. ENTROPHEN [Concomitant]
     Dosage: FREQUENCY: UNKNOWN.
  9. LANOXIN [Concomitant]
  10. OSCAL [Concomitant]
  11. APO-OMEPRAZOLE [Concomitant]
  12. APO-FUROSEMIDE [Concomitant]
  13. K-DUR 10 [Concomitant]
  14. FOSAMAX [Concomitant]

REACTIONS (3)
  - CLOSTRIDIAL INFECTION [None]
  - CYTOMEGALOVIRUS INFECTION [None]
  - RECTAL HAEMORRHAGE [None]
